FAERS Safety Report 11140371 (Version 2)
Quarter: 2015Q2

REPORT INFORMATION
  Report Type: Spontaneous
  Country: KR (occurrence: KR)
  Receive Date: 20150527
  Receipt Date: 20150605
  Transmission Date: 20150821
  Serious: Yes (Hospitalization, Other)
  Sender: FDA-Public Use
  Company Number: KR-ABBVIE-15P-286-1395219-00

PATIENT
  Age: 43 Year
  Sex: Male

DRUGS (2)
  1. ADALIMUMAB [Suspect]
     Active Substance: ADALIMUMAB
     Route: 065
  2. ADALIMUMAB [Suspect]
     Active Substance: ADALIMUMAB
     Indication: ANKYLOSING SPONDYLITIS
     Route: 058

REACTIONS (4)
  - Pyrexia [Recovered/Resolved]
  - Chills [Recovered/Resolved]
  - Psoas abscess [Recovered/Resolved]
  - Condition aggravated [Recovered/Resolved]
